FAERS Safety Report 7443251-4 (Version None)
Quarter: 2011Q2

REPORT INFORMATION
  Report Type: 
  Country: None (occurrence: None)
  Receive Date: 20110428
  Receipt Date: 20110422
  Transmission Date: 20111010
  Serious: Yes (Hospitalization)
  Sender: FDA-Public Use
  Company Number: B0715572A

PATIENT
  Sex: Female
  Weight: 52 kg

DRUGS (13)
  1. TAKEPRON [Concomitant]
     Dosage: 15MG PER DAY
     Route: 048
     Dates: end: 20071108
  2. URSO 250 [Concomitant]
     Dosage: 600MG PER DAY
     Route: 048
     Dates: end: 20071108
  3. DIFLUCAN [Concomitant]
     Dosage: 200MG PER DAY
     Route: 048
     Dates: end: 20070912
  4. ALKERAN [Suspect]
     Indication: ALLOGENIC BONE MARROW TRANSPLANTATION THERAPY
     Dosage: 88MG PER DAY
     Route: 042
     Dates: start: 20070813, end: 20070814
  5. FLUDARA [Suspect]
     Indication: ALLOGENIC BONE MARROW TRANSPLANTATION THERAPY
     Dosage: 32MG PER DAY
     Route: 042
     Dates: start: 20070808, end: 20070812
  6. MAGMITT [Concomitant]
     Dosage: 1980MG PER DAY
     Route: 048
     Dates: end: 20071108
  7. NEUTROGIN [Concomitant]
     Dates: start: 20070821, end: 20071016
  8. TACROLIMUS HYDRATE [Concomitant]
     Indication: IMMUNOSUPPRESSION
     Dosage: 2MG PER DAY
     Dates: start: 20070816, end: 20071016
  9. NEOPHAGEN C [Concomitant]
     Dosage: 40ML PER DAY
     Route: 042
     Dates: end: 20071029
  10. AZUNOL [Concomitant]
     Dosage: 10MG PER DAY
     Route: 048
     Dates: start: 20070814, end: 20070814
  11. ZOVIRAX [Suspect]
     Dosage: 1000MG PER DAY
     Route: 048
     Dates: end: 20070912
  12. CIPROFLOXACIN HCL [Concomitant]
     Dosage: 600MG PER DAY
     Route: 048
     Dates: end: 20070817
  13. KYTRIL [Concomitant]
     Dosage: 3MG PER DAY
     Dates: end: 20070815

REACTIONS (2)
  - FEBRILE NEUTROPENIA [None]
  - HEPATIC FUNCTION ABNORMAL [None]
